FAERS Safety Report 25646986 (Version 2)
Quarter: 2025Q3

REPORT INFORMATION
  Report Type: Report from Study
  Country: CA (occurrence: CA)
  Receive Date: 20250805
  Receipt Date: 20250828
  Transmission Date: 20251020
  Serious: Yes (Hospitalization, Other)
  Sender: ALEXION PHARMACEUTICALS
  Company Number: CA-AstraZeneca-CH-00884655A

PATIENT
  Sex: Male
  Weight: 95.238 kg

DRUGS (7)
  1. ACALABRUTINIB [Suspect]
     Active Substance: ACALABRUTINIB
     Indication: Chronic lymphocytic leukaemia
     Dosage: 100 MILLIGRAM, Q12H
     Dates: start: 20201027
  2. CLOPIDOGREL [Concomitant]
     Active Substance: CLOPIDOGREL BISULFATE
  3. FENOFIBRATE [Concomitant]
     Active Substance: FENOFIBRATE
  4. TAMSULOSIN [Concomitant]
     Active Substance: TAMSULOSIN
  5. GABAPENTIN [Concomitant]
     Active Substance: GABAPENTIN
  6. Pentazole [Concomitant]
  7. ROSUVASTATIN [Concomitant]
     Active Substance: ROSUVASTATIN

REACTIONS (5)
  - Limb discomfort [Recovered/Resolved]
  - Peripheral vascular disorder [Recovered/Resolved]
  - Haemorrhage [Recovered/Resolved]
  - Duodenal ulcer haemorrhage [Recovered/Resolved]
  - Ulcer haemorrhage [Recovering/Resolving]
